FAERS Safety Report 6122313-8 (Version None)
Quarter: 2009Q1

REPORT INFORMATION
  Report Type: 
  Country: None (occurrence: None)
  Receive Date: 20090316
  Receipt Date: 20090316
  Transmission Date: 20090719
  Serious: Yes (Other)
  Sender: FDA-Public Use
  Company Number: None

PATIENT
  Age: 33 Year
  Sex: Female
  Weight: 50.3493 kg

DRUGS (1)
  1. LUNESTA [Suspect]
     Indication: INSOMNIA
     Dosage: ONE TAB QHS PRN PO, ONCE
     Route: 048
     Dates: start: 20090312, end: 20090312

REACTIONS (11)
  - AGITATION [None]
  - CONVERSION DISORDER [None]
  - CRYING [None]
  - FALL [None]
  - HALLUCINATION, VISUAL [None]
  - MUSCULAR WEAKNESS [None]
  - NIGHTMARE [None]
  - PERFORMANCE FEAR [None]
  - SCREAMING [None]
  - SOMNOLENCE [None]
  - TREMOR [None]
